FAERS Safety Report 9637810 (Version 3)
Quarter: 2014Q2

REPORT INFORMATION
  Report Type: Spontaneous
  Country: US (occurrence: US)
  Receive Date: 20131022
  Receipt Date: 20140516
  Transmission Date: 20141212
  Serious: Yes (Hospitalization, Other)
  Sender: FDA-Public Use
  Company Number: US-PFIZER INC-2013300439

PATIENT
  Age: 79 Year
  Sex: Female
  Weight: 58.96 kg

DRUGS (2)
  1. REVATIO [Suspect]
     Indication: PULMONARY HYPERTENSION
     Dosage: 40 MG (BY TAKING TWO 20MG TABLETS), 3X/DAY
     Route: 048
     Dates: start: 2008
  2. COUMADIN [Concomitant]
     Indication: BLOOD IRON ABNORMAL
     Dosage: UNK

REACTIONS (5)
  - Pulmonary thrombosis [Unknown]
  - Chest pain [Unknown]
  - Dialysis related complication [Unknown]
  - Renal disorder [Unknown]
  - International normalised ratio fluctuation [Unknown]
